FAERS Safety Report 22054080 (Version 1)
Quarter: 2023Q1

REPORT INFORMATION
  Report Type: Spontaneous
  Country: US (occurrence: US)
  Receive Date: 20230302
  Receipt Date: 20230302
  Transmission Date: 20230418
  Serious: No
  Sender: FDA-Public Use
  Company Number: US-NOVOPROD-945669

PATIENT
  Age: 52 Year
  Sex: Female

DRUGS (2)
  1. SAXENDA [Suspect]
     Active Substance: LIRAGLUTIDE
     Dosage: 2.4 MG
  2. SAXENDA [Suspect]
     Active Substance: LIRAGLUTIDE
     Indication: Product used for unknown indication
     Dosage: 1.8 MG

REACTIONS (5)
  - Increased appetite [Unknown]
  - Drug ineffective [Unknown]
  - Off label use [Unknown]
  - Device failure [Not Recovered/Not Resolved]
  - Device mechanical issue [Not Recovered/Not Resolved]
